FAERS Safety Report 6956356-9 (Version None)
Quarter: 2010Q3

REPORT INFORMATION
  Report Type: 
  Country: None (occurrence: None)
  Receive Date: 20100830
  Receipt Date: 20100823
  Transmission Date: 20110219
  Serious: Yes (Other)
  Sender: FDA-Public Use
  Company Number: A0869248A

PATIENT
  Age: 44 Year
  Sex: Female

DRUGS (9)
  1. TYKERB [Suspect]
     Indication: BREAST CANCER
     Dosage: 250U PER DAY
     Route: 048
     Dates: start: 20100628
  2. XELODA [Suspect]
     Indication: PRODUCT USED FOR UNKNOWN INDICATION
  3. VICODIN [Concomitant]
  4. XANAX [Concomitant]
  5. ATIVAN [Concomitant]
  6. FLEXERIL [Concomitant]
  7. BENADRYL [Concomitant]
  8. MARINOL [Concomitant]
  9. CHEMOTHERAPY [Concomitant]

REACTIONS (20)
  - ACNE [None]
  - ASTHENIA [None]
  - CONDITION AGGRAVATED [None]
  - COUGH [None]
  - DECREASED APPETITE [None]
  - DIARRHOEA [None]
  - DYSPEPSIA [None]
  - DYSPNOEA [None]
  - ECHOCARDIOGRAM [None]
  - FATIGUE [None]
  - HYPERSOMNIA [None]
  - IMPAIRED HEALING [None]
  - LIMB INJURY [None]
  - NASAL ULCER [None]
  - NAUSEA [None]
  - ORAL MUCOSAL EXFOLIATION [None]
  - PALMAR-PLANTAR ERYTHRODYSAESTHESIA SYNDROME [None]
  - SKIN HAEMORRHAGE [None]
  - TACHYCARDIA [None]
  - VOMITING [None]
